FAERS Safety Report 8776240 (Version 1)
Quarter: 2012Q4

REPORT INFORMATION
  Report Type: 
  Country: CA (occurrence: CA)
  Receive Date: 20120910
  Receipt Date: 20120910
  Transmission Date: 20130627
  Serious: Yes (Hospitalization)
  Sender: FDA-Public Use
  Company Number: CA-ASTRAZENECA-2012SE69169

PATIENT
  Sex: Female

DRUGS (1)
  1. SYMBICORT TURBUHALER [Suspect]
     Dosage: Unknown
     Route: 055

REACTIONS (1)
  - Intentional drug misuse [Unknown]
